FAERS Safety Report 7033353-9 (Version None)
Quarter: 2010Q4

REPORT INFORMATION
  Report Type: 
  Country: None (occurrence: None)
  Receive Date: 20101005
  Receipt Date: 20100920
  Transmission Date: 20110411
  Serious: Yes (Hospitalization)
  Sender: FDA-Public Use
  Company Number: 2010AM003084

PATIENT
  Age: 72 Year
  Sex: Female
  Weight: 77.1115 kg

DRUGS (12)
  1. SYMLIN [Suspect]
     Indication: TYPE 2 DIABETES MELLITUS
     Dosage: 120 MCG; TID; SC
     Route: 058
     Dates: start: 20080101
  2. NOVOLOG [Concomitant]
  3. LEVEMIR [Concomitant]
  4. FERMARA [Concomitant]
  5. LEVOTHYROXINE [Concomitant]
  6. OMEPRAZOLE [Concomitant]
  7. PRAVASTATIN [Concomitant]
  8. ATACAND HCT [Concomitant]
  9. ATENOLOL [Concomitant]
  10. HYDROCHLOROTHIAZIDE [Concomitant]
  11. METFORMIN [Concomitant]
  12. LEXAPRO [Concomitant]

REACTIONS (4)
  - ANXIETY [None]
  - LUNG DISORDER [None]
  - MACULAR DEGENERATION [None]
  - PNEUMONIA [None]
